FAERS Safety Report 12810093 (Version 1)
Quarter: 2016Q4

REPORT INFORMATION
  Report Type: Spontaneous
  Country: US (occurrence: US)
  Receive Date: 20161005
  Receipt Date: 20161005
  Transmission Date: 20170207
  Serious: No
  Sender: FDA-Public Use
  Company Number: US-PFIZER INC-2016427329

PATIENT
  Sex: Female
  Weight: 43 kg

DRUGS (1)
  1. XALKORI [Suspect]
     Active Substance: CRIZOTINIB
     Indication: GENE MUTATION
     Dosage: 250 MG, 2X/DAY
     Route: 048
     Dates: start: 201605

REACTIONS (4)
  - Dysstasia [Unknown]
  - Fatigue [Not Recovered/Not Resolved]
  - Peripheral swelling [Recovering/Resolving]
  - Oropharyngeal pain [Not Recovered/Not Resolved]
